FAERS Safety Report 9388756 (Version 1)
Quarter: 2013Q3

REPORT INFORMATION
  Report Type: Spontaneous
  Country: FR (occurrence: FR)
  Receive Date: 20130708
  Receipt Date: 20130708
  Transmission Date: 20140515
  Serious: Yes (Disabling)
  Sender: FDA-Public Use
  Company Number: FR-GLAXOSMITHKLINE-B0904524A

PATIENT
  Age: 65 Year
  Sex: Female

DRUGS (17)
  1. ZOPHREN [Suspect]
     Indication: PREMEDICATION
     Dosage: 8MG CYCLIC
     Route: 042
     Dates: start: 20120403, end: 20121114
  2. OXALIPLATINE [Suspect]
     Indication: PANCREATIC CARCINOMA
     Dosage: 85MGK CYCLIC
     Route: 042
     Dates: start: 20120403, end: 20121114
  3. FLUORO-URACILE [Suspect]
     Indication: PANCREATIC CARCINOMA
     Dosage: 1600MGM2 CYCLIC
     Route: 042
     Dates: start: 20120403, end: 20121114
  4. IRINOTECAN [Suspect]
     Indication: PANCREATIC CARCINOMA
     Dosage: 180MGM2 CYCLIC
     Route: 042
     Dates: start: 20120403, end: 20121114
  5. SOLUMEDROL [Suspect]
     Indication: PANCREATIC CARCINOMA
     Dosage: 60MG CYCLIC
     Route: 042
     Dates: start: 20120403, end: 20121114
  6. ATROPINE [Suspect]
     Indication: PANCREATIC CARCINOMA
     Dosage: .25MG CYCLIC
     Route: 058
     Dates: start: 20120403, end: 20121114
  7. FOLINATE CALCIUM [Suspect]
     Indication: PANCREATIC CARCINOMA
     Dosage: 288MG CYCLIC
     Route: 042
     Dates: start: 20120403, end: 20121114
  8. EMEND [Suspect]
     Indication: PREMEDICATION
     Dosage: 125MG CYCLIC
     Route: 048
     Dates: start: 20120403, end: 20121114
  9. LEVOTHYROX [Concomitant]
  10. FLUOXETINE [Concomitant]
  11. PRAVASTATIN SODIUM [Concomitant]
  12. VOGALENE [Concomitant]
  13. DIFFU K [Concomitant]
  14. LOPERAMIDE [Concomitant]
  15. EUPANTOL [Concomitant]
  16. PRIMPERAN [Concomitant]
  17. INNOHEP [Concomitant]

REACTIONS (5)
  - Peripheral sensory neuropathy [Not Recovered/Not Resolved]
  - Arthralgia [Not Recovered/Not Resolved]
  - Insomnia [Not Recovered/Not Resolved]
  - Limb discomfort [Not Recovered/Not Resolved]
  - Paraesthesia [Not Recovered/Not Resolved]
